FAERS Safety Report 5121494-2 (Version None)
Quarter: 2006Q4

REPORT INFORMATION
  Report Type: 
  Country: None (occurrence: None)
  Receive Date: 20061006
  Receipt Date: 20061002
  Transmission Date: 20070319
  Serious: Yes (Other)
  Sender: FDA-Public Use
  Company Number: US-JNJFOC-20061000469

PATIENT
  Sex: Female
  Weight: 68.95 kg

DRUGS (3)
  1. EXTRA STRENGTH TYLENOL [Suspect]
     Route: 048
  2. EXTRA STRENGTH TYLENOL [Suspect]
     Indication: PAIN
     Dosage: 500MG EVERY 3 HOURS TIMES FOUR DOSES
     Route: 048
  3. OTHER UNSPECIFIED MEDICATIONS [Concomitant]

REACTIONS (1)
  - VERTIGO [None]
